FAERS Safety Report 6836637-X (Version None)
Quarter: 2010Q3

REPORT INFORMATION
  Report Type: 
  Country: None (occurrence: None)
  Receive Date: 20100713
  Receipt Date: 20100710
  Transmission Date: 20110219
  Serious: Yes (Death)
  Sender: FDA-Public Use
  Company Number: PHHY2010DE24778

PATIENT
  Age: 89 Year
  Sex: Male

DRUGS (1)
  1. VOLTAREN [Suspect]
     Indication: ANALGESIC THERAPY
     Dosage: UNK
     Route: 054
     Dates: start: 20100201, end: 20100301

REACTIONS (6)
  - BLADDER IRRIGATION [None]
  - CONCOMITANT DISEASE PROGRESSION [None]
  - CYSTITIS [None]
  - HYPERHIDROSIS [None]
  - RENAL FAILURE [None]
  - URINE OUTPUT DECREASED [None]
